FAERS Safety Report 6493908-7 (Version None)
Quarter: 2009Q4

REPORT INFORMATION
  Report Type: 
  Country: None (occurrence: None)
  Receive Date: 20091214
  Receipt Date: 20081121
  Transmission Date: 20100525
  Serious: No
  Sender: FDA-Public Use
  Company Number: US-BRISTOL-MYERS SQUIBB COMPANY-14415889

PATIENT
  Age: 62 Year
  Sex: Male

DRUGS (3)
  1. ABILIFY [Suspect]
  2. WELLBUTRIN [Suspect]
  3. PROZAC [Suspect]

REACTIONS (2)
  - PARKINSONIAN REST TREMOR [None]
  - RESTLESSNESS [None]
